FAERS Safety Report 12914174 (Version 2)
Quarter: 2020Q1

REPORT INFORMATION
  Report Type: Spontaneous
  Country: US (occurrence: US)
  Receive Date: 20161106
  Receipt Date: 20200327
  Transmission Date: 20200409
  Serious: Yes (Death)
  Sender: FDA-Public Use
  Company Number: US-ASTRAZENECA-2016SF14462

PATIENT
  Age: 21396 Day
  Sex: Female
  Weight: 81.2 kg

DRUGS (24)
  1. JANUVIA [Suspect]
     Active Substance: SITAGLIPTIN PHOSPHATE
     Route: 048
     Dates: start: 20070314
  2. AMITIZA [Concomitant]
     Active Substance: LUBIPROSTONE
  3. BYETTA [Suspect]
     Active Substance: EXENATIDE
     Route: 065
     Dates: start: 200603, end: 200606
  4. JANUVIA [Suspect]
     Active Substance: SITAGLIPTIN PHOSPHATE
     Route: 065
     Dates: start: 200703, end: 201307
  5. URSODIOL. [Concomitant]
     Active Substance: URSODIOL
  6. BYETTA [Suspect]
     Active Substance: EXENATIDE
     Dosage: 10 MCG PEN-INJECT TWICE DAILY
     Route: 065
     Dates: start: 20060301
  7. JANUMET [Suspect]
     Active Substance: METFORMIN HYDROCHLORIDE\SITAGLIPTIN PHOSPHATE
     Dosage: 50-100 MG-TAKE 1 TWICE DAILY
     Route: 048
     Dates: start: 20080320, end: 200904
  8. NEXIUM [Concomitant]
     Active Substance: ESOMEPRAZOLE MAGNESIUM
  9. BYETTA [Suspect]
     Active Substance: EXENATIDE
     Dosage: INJECT TWICE DAILY
     Route: 065
     Dates: start: 20060301, end: 200605
  10. TRAMADOL. [Concomitant]
     Active Substance: TRAMADOL
  11. PANCRELIPASE. [Concomitant]
     Active Substance: PANCRELIPASE
  12. PANTOPRAZOLE [Concomitant]
     Active Substance: PANTOPRAZOLE
  13. VENLAFAXINE [Concomitant]
     Active Substance: VENLAFAXINE HYDROCHLORIDE
  14. BYETTA [Suspect]
     Active Substance: EXENATIDE
     Dosage: 5 MCG PEN-INJECT TWICE DAILY
     Route: 058
     Dates: start: 20060403
  15. VYTORIN [Concomitant]
     Active Substance: EZETIMIBE\SIMVASTATIN
  16. LEVAQUIN [Concomitant]
     Active Substance: LEVOFLOXACIN
  17. LIPITOR [Concomitant]
     Active Substance: ATORVASTATIN CALCIUM
  18. JANUVIA [Suspect]
     Active Substance: SITAGLIPTIN PHOSPHATE
     Route: 048
     Dates: start: 20070314, end: 201307
  19. ETODOLAC. [Concomitant]
     Active Substance: ETODOLAC
  20. DIOVAN [Concomitant]
     Active Substance: VALSARTAN
  21. JANUMET [Suspect]
     Active Substance: METFORMIN HYDROCHLORIDE\SITAGLIPTIN PHOSPHATE
     Route: 065
     Dates: start: 200806, end: 200910
  22. METFORMIN [Concomitant]
     Active Substance: METFORMIN HYDROCHLORIDE
  23. ZELNORM [Concomitant]
     Active Substance: TEGASEROD MALEATE
  24. CIPROFLOXACIN. [Concomitant]
     Active Substance: CIPROFLOXACIN

REACTIONS (1)
  - Pancreatic carcinoma metastatic [Fatal]

NARRATIVE: CASE EVENT DATE: 20130718
